FAERS Safety Report 6255877-4 (Version None)
Quarter: 2009Q3

REPORT INFORMATION
  Report Type: 
  Country: None (occurrence: None)
  Receive Date: 20090703
  Receipt Date: 20090629
  Transmission Date: 20100115
  Serious: Yes (Disabling)
  Sender: FDA-Public Use
  Company Number: IT-ROCHE-641055

PATIENT
  Sex: Male

DRUGS (3)
  1. ROCEPHIN [Suspect]
     Indication: BRONCHOPNEUMONIA
     Route: 065
     Dates: start: 20081031, end: 20081106
  2. LEVOFLOXACIN [Suspect]
     Indication: BRONCHOPNEUMONIA
     Dosage: FREQUENCY: DAILY DRUG NAME REPORTED AS PRIXAR
     Route: 048
     Dates: start: 20081017, end: 20081021
  3. LEVOFLOXACIN [Suspect]
     Dosage: FREQUENCY: DAILY DRUG NAME REPORTED AS PRIXAR
     Route: 048
     Dates: start: 20081031, end: 20081108

REACTIONS (3)
  - POLYNEUROPATHY [None]
  - SENSITIVITY OF TEETH [None]
  - TENDONITIS [None]
